FAERS Safety Report 4279722-1 (Version None)
Quarter: 2004Q1

REPORT INFORMATION
  Report Type: 
  Country: None (occurrence: None)
  Receive Date: 20040127
  Receipt Date: 20030407
  Transmission Date: 20041129
  Serious: Yes (Disabling)
  Sender: FDA-Public Use
  Company Number: WAES 0304USA00845

PATIENT
  Age: 26 Year
  Sex: Male
  Weight: 91 kg

DRUGS (2)
  1. VIOXX [Suspect]
     Indication: BACK PAIN
     Route: 048
     Dates: start: 20000712, end: 20010921
  2. VIOXX [Suspect]
     Indication: ARTHRALGIA
     Route: 048
     Dates: start: 20000712, end: 20010921

REACTIONS (11)
  - CONVULSION [None]
  - DYSPEPSIA [None]
  - EMOTIONAL DISTRESS [None]
  - HYPERTENSION [None]
  - INJURY [None]
  - JOINT SWELLING [None]
  - MIGRAINE [None]
  - OEDEMA PERIPHERAL [None]
  - OSTEOARTHRITIS [None]
  - SYNCOPE [None]
  - THYROID DISORDER [None]
